FAERS Safety Report 24139078 (Version 1)
Quarter: 2024Q3

REPORT INFORMATION
  Report Type: Spontaneous
  Country: US (occurrence: US)
  Receive Date: 20240726
  Receipt Date: 20240726
  Transmission Date: 20241016
  Serious: Yes (Other)
  Sender: BRISTOL MYERS SQUIBB
  Company Number: US-BRISTOL-MYERS SQUIBB COMPANY-2024-116109

PATIENT
  Age: 33 Year
  Sex: Female
  Weight: 92.99 kg

DRUGS (2)
  1. OPDIVO [Suspect]
     Active Substance: NIVOLUMAB
     Indication: Malignant melanoma
     Dosage: DOSE: 240MG
     Route: 042
     Dates: start: 20240702
  2. YERVOY [Suspect]
     Active Substance: IPILIMUMAB
     Indication: Malignant melanoma
     Dosage: DOSE:80 MG
     Route: 042
     Dates: start: 20240702

REACTIONS (2)
  - Malignant neoplasm progression [Unknown]
  - Off label use [Unknown]
